FAERS Safety Report 6588705-8 (Version None)
Quarter: 2010Q1

REPORT INFORMATION
  Report Type: 
  Country: None (occurrence: None)
  Receive Date: 20100212
  Receipt Date: 20100128
  Transmission Date: 20100710
  Serious: Yes (Other)
  Sender: FDA-Public Use
  Company Number: 005807

PATIENT
  Age: 18 Year
  Sex: Female
  Weight: 89 kg

DRUGS (4)
  1. CO-CODAMOL (CO-CODAMOL) [Suspect]
     Indication: MIGRAINE
     Dates: start: 20081230
  2. HUMAN PAPILLOMA VIRUS VACCINE (CERVARIX) [Suspect]
     Indication: PROPHYLAXIS
     Dosage: 1 DF, 1 DF,
     Dates: start: 20090218, end: 20090218
  3. HUMAN PAPILLOMA VIRUS VACCINE (CERVARIX) [Suspect]
     Indication: PROPHYLAXIS
     Dosage: 1 DF, 1 DF,
     Dates: start: 20090713, end: 20090713
  4. MOVICOL (MOVICOL) [Suspect]
     Indication: CONSTIPATION
     Dosage: 1/1 DAY;
     Dates: start: 20091230

REACTIONS (2)
  - ABORTION SPONTANEOUS [None]
  - DRUG EXPOSURE DURING PREGNANCY [None]
